FAERS Safety Report 9553551 (Version 1)
Quarter: 2013Q3

REPORT INFORMATION
  Report Type: Spontaneous
  Country: GB (occurrence: None)
  Receive Date: 20130923
  Receipt Date: 20130923
  Transmission Date: 20140515
  Serious: Yes (Other)
  Sender: FDA-Public Use
  Company Number: ABR_01125_2013

PATIENT
  Age: 66 Year
  Sex: Female
  Weight: 71.4 kg

DRUGS (4)
  1. ERYTHROMYCIN (ERYTHROMYCIN) [Suspect]
     Indication: PRODUCT USED FOR UNKNOWN INDICATION
     Dosage: DF  8/16/2013 TO UNKNOWN
     Dates: start: 20130816
  2. ALENDRONIC ACID [Concomitant]
  3. CALCIUM CARBONATE [Concomitant]
  4. METROGEL [Concomitant]

REACTIONS (2)
  - Swelling face [None]
  - Rash [None]
